FAERS Safety Report 23786600 (Version 1)
Quarter: 2024Q2

REPORT INFORMATION
  Report Type: Spontaneous
  Country: CZ (occurrence: CZ)
  Receive Date: 20240426
  Receipt Date: 20240426
  Transmission Date: 20240716
  Serious: Yes (Other)
  Sender: FDA-Public Use
  Company Number: CZ-CELLTRION INC.-2024CZ009434

PATIENT

DRUGS (3)
  1. RITUXIMAB [Suspect]
     Active Substance: RITUXIMAB
     Indication: Chronic lymphocytic leukaemia
     Dosage: UNK
     Route: 065
     Dates: start: 201806, end: 201811
  2. RITUXIMAB [Suspect]
     Active Substance: RITUXIMAB
     Dosage: UNK
     Route: 065
     Dates: start: 201806, end: 201811
  3. BENDAMUSTINE HYDROCHLORIDE [Suspect]
     Active Substance: BENDAMUSTINE HYDROCHLORIDE
     Indication: Chronic lymphocytic leukaemia
     Dosage: 6 CYCLES
     Route: 065
     Dates: start: 201806, end: 201811

REACTIONS (3)
  - Dermatitis allergic [Unknown]
  - Pruritus [Unknown]
  - Neutropenia [Recovered/Resolved]
